FAERS Safety Report 5953331-8 (Version None)
Quarter: 2008Q4

REPORT INFORMATION
  Report Type: 
  Country: None (occurrence: None)
  Receive Date: 20081114
  Receipt Date: 20081111
  Transmission Date: 20090506
  Serious: Yes (Hospitalization)
  Sender: FDA-Public Use
  Company Number: BR-B.I. PHARMACEUTICALS,INC./RIDGEFIELD-2008-BR-00288BR

PATIENT
  Age: 58 Year
  Sex: Female

DRUGS (5)
  1. BEROTEC DROPS [Suspect]
     Indication: CHRONIC OBSTRUCTIVE PULMONARY DISEASE
     Dosage: 8MG
     Route: 055
  2. ATROVENT [Suspect]
     Indication: CHRONIC OBSTRUCTIVE PULMONARY DISEASE
     Dosage: 1.25MG
     Route: 055
  3. COMBIVENT [Suspect]
     Indication: CHRONIC OBSTRUCTIVE PULMONARY DISEASE
     Route: 055
     Dates: start: 19980101
  4. SPIRIVA [Suspect]
     Indication: CHRONIC OBSTRUCTIVE PULMONARY DISEASE
     Dosage: 18MCG
     Route: 055
     Dates: start: 20060101
  5. FORASEQ [Concomitant]

REACTIONS (5)
  - DIARRHOEA [None]
  - INFLUENZA [None]
  - NASOPHARYNGITIS [None]
  - OVERDOSE [None]
  - THERAPEUTIC RESPONSE DECREASED [None]
